FAERS Safety Report 4940131-0 (Version None)
Quarter: 2006Q1

REPORT INFORMATION
  Report Type: 
  Country: None (occurrence: None)
  Receive Date: 20060310
  Receipt Date: 20041104
  Transmission Date: 20060701
  Serious: Yes (Disabling)
  Sender: FDA-Public Use
  Company Number: US-ROCHE-385665

PATIENT
  Age: 27 Year
  Sex: Female

DRUGS (1)
  1. ACCUTANE [Suspect]
     Indication: ACNE
     Route: 065
     Dates: start: 19961111, end: 19970206

REACTIONS (66)
  - ABDOMINAL DISCOMFORT [None]
  - ACCIDENT AT WORK [None]
  - ARTHRITIS [None]
  - ARTHROPOD STING [None]
  - AUTOIMMUNE DISORDER [None]
  - BACK INJURY [None]
  - BETA HAEMOLYTIC STREPTOCOCCAL INFECTION [None]
  - BODY HEIGHT DECREASED [None]
  - BONE DISORDER [None]
  - BURNS SECOND DEGREE [None]
  - CELLULITIS [None]
  - COLITIS [None]
  - COLITIS ULCERATIVE [None]
  - CONJUNCTIVITIS [None]
  - CONNECTIVE TISSUE DISORDER [None]
  - CONSTIPATION [None]
  - DERMAL CYST [None]
  - DRUG EXPOSURE DURING PREGNANCY [None]
  - DRY SOCKET [None]
  - EMOTIONAL DISTRESS [None]
  - EYE PAIN [None]
  - EYELID OEDEMA [None]
  - GASTROINTESTINAL DISORDER [None]
  - GAZE PALSY [None]
  - HORDEOLUM [None]
  - HOT FLUSH [None]
  - HYPERHIDROSIS [None]
  - INFLAMMATORY BOWEL DISEASE [None]
  - INTESTINAL HAEMORRHAGE [None]
  - JOINT STIFFNESS [None]
  - LYMPHADENOPATHY [None]
  - MOUTH ULCERATION [None]
  - MULTI-ORGAN DISORDER [None]
  - MUSCLE STRAIN [None]
  - MUSCULOSKELETAL CHEST PAIN [None]
  - MUSCULOSKELETAL DISORDER [None]
  - MYOPIA [None]
  - NAUSEA [None]
  - NYSTAGMUS [None]
  - OSTEOARTHRITIS [None]
  - OSTEOPENIA [None]
  - OSTEOPOROSIS [None]
  - PAIN IN EXTREMITY [None]
  - PALINDROMIC RHEUMATISM [None]
  - PHARYNGOLARYNGEAL PAIN [None]
  - PREGNANCY [None]
  - PROCEDURAL PAIN [None]
  - PRURITUS GENERALISED [None]
  - RECTAL HAEMORRHAGE [None]
  - RECTAL POLYP [None]
  - RESTLESS LEGS SYNDROME [None]
  - RETINAL DISORDER [None]
  - RETINAL TEAR [None]
  - RHEUMATOID ARTHRITIS [None]
  - SCOLIOSIS [None]
  - STAPHYLOMA [None]
  - SYSTEMIC LUPUS ERYTHEMATOSUS [None]
  - TEMPOROMANDIBULAR JOINT SYNDROME [None]
  - TENDONITIS [None]
  - TOOTH EXTRACTION [None]
  - URTICARIA GENERALISED [None]
  - VAGINAL HAEMORRHAGE [None]
  - VASCULITIS [None]
  - VERTIGO [None]
  - VITREOUS FLOATERS [None]
  - WEIGHT INCREASED [None]
